FAERS Safety Report 18600077 (Version 1)
Quarter: 2020Q4

REPORT INFORMATION
  Report Type: Spontaneous
  Country: US (occurrence: US)
  Receive Date: 20201210
  Receipt Date: 20201210
  Transmission Date: 20210114
  Serious: Yes (Disabling)
  Sender: FDA-Public Use
  Company Number: None

PATIENT
  Age: 27 Year
  Sex: Female
  Weight: 58.97 kg

DRUGS (6)
  1. PARAGARD T 380A [Suspect]
     Active Substance: COPPER
  2. SPIRONOLACTONE. [Concomitant]
     Active Substance: SPIRONOLACTONE
  3. MULTIVITAMIN [Concomitant]
     Active Substance: VITAMINS
  4. PROBIOTIC [Concomitant]
     Active Substance: PROBIOTICS NOS
  5. TURMERIC [Concomitant]
     Active Substance: HERBALS\TURMERIC
  6. CRANBERRY. [Concomitant]
     Active Substance: CRANBERRY

REACTIONS (9)
  - Dizziness [None]
  - Complication of device removal [None]
  - Device material issue [None]
  - Feeling abnormal [None]
  - Paraesthesia [None]
  - Hydrometra [None]
  - Headache [None]
  - Heart rate increased [None]
  - Haemorrhage [None]

NARRATIVE: CASE EVENT DATE: 20201208
